FAERS Safety Report 8593946-4 (Version None)
Quarter: 2012Q3

REPORT INFORMATION
  Report Type: 
  Country: None (occurrence: None)
  Receive Date: 20120814
  Receipt Date: 20120731
  Transmission Date: 20120928
  Serious: No
  Sender: FDA-Public Use
  Company Number: US-BAYER-2012-063083

PATIENT
  Age: 22 Year
  Sex: Female
  Weight: 56.689 kg

DRUGS (5)
  1. MIRENA [Suspect]
     Indication: DYSMENORRHOEA
  2. MIRENA [Suspect]
     Indication: MENORRHAGIA
     Dosage: 20 MCG/24HR, CONT
     Route: 015
     Dates: start: 20120521, end: 20120622
  3. LORATADINE [Concomitant]
     Indication: SEASONAL ALLERGY
     Dosage: 1 DF, QD
     Route: 048
  4. MIRENA [Suspect]
     Indication: CONTRACEPTION
  5. MIRENA [Suspect]
     Indication: MALAISE

REACTIONS (2)
  - BACK PAIN [None]
  - ADVERSE DRUG REACTION [None]
